FAERS Safety Report 11265542 (Version 1)
Quarter: 2015Q3

REPORT INFORMATION
  Report Type: Spontaneous
  Country: BR (occurrence: BR)
  Receive Date: 20150713
  Receipt Date: 20150713
  Transmission Date: 20151125
  Serious: Yes (Other)
  Sender: FDA-Public Use
  Company Number: PHHY2015BR057250

PATIENT
  Age: 67 Year
  Sex: Male
  Weight: 63 kg

DRUGS (2)
  1. DOXAZOSIN [Suspect]
     Active Substance: DOXAZOSIN\DOXAZOSIN MESYLATE
     Dosage: 4 MG, QD
     Route: 048
     Dates: start: 20150507
  2. DOXAZOSIN [Suspect]
     Active Substance: DOXAZOSIN\DOXAZOSIN MESYLATE
     Indication: HYPERTENSION
     Dosage: 2 MG, QD
     Route: 048
     Dates: start: 20150507

REACTIONS (4)
  - Nausea [Recovering/Resolving]
  - Palpitations [Recovering/Resolving]
  - Dizziness [Recovered/Resolved]
  - Hydrocele [Not Recovered/Not Resolved]
